FAERS Safety Report 4350094-7 (Version None)
Quarter: 2004Q2

REPORT INFORMATION
  Report Type: 
  Country: None (occurrence: None)
  Receive Date: 20040429
  Receipt Date: 20031029
  Transmission Date: 20050107
  Serious: Yes (Death)
  Sender: FDA-Public Use
  Company Number: US-GLAXOSMITHKLINE-B0313949A

PATIENT
  Age: 76 Year
  Sex: Female

DRUGS (3)
  1. WELLBUTRIN [Suspect]
     Route: 048
  2. ATENOLOL [Suspect]
     Route: 065
  3. AMLODIPINE [Suspect]
     Route: 065

REACTIONS (5)
  - CARDIAC ARREST [None]
  - COMPLETED SUICIDE [None]
  - HYPOTENSION [None]
  - LETHARGY [None]
  - OVERDOSE [None]
